FAERS Safety Report 26055516 (Version 2)
Quarter: 2025Q4

REPORT INFORMATION
  Report Type: Spontaneous
  Country: JP (occurrence: JP)
  Receive Date: 20251117
  Receipt Date: 20251207
  Transmission Date: 20260117
  Serious: Yes (Death, Hospitalization, Other)
  Sender: TAKEDA
  Company Number: JP-TAKEDA-2025TJP007232

PATIENT
  Age: 75 Year
  Sex: Female

DRUGS (5)
  1. FRUZAQLA [Suspect]
     Active Substance: FRUQUINTINIB
     Indication: Colon cancer
     Dosage: 5 MILLIGRAM, QD
     Dates: start: 20250512
  2. FRUZAQLA [Suspect]
     Active Substance: FRUQUINTINIB
     Dosage: 1 MILLIGRAM
  3. FRUZAQLA [Suspect]
     Active Substance: FRUQUINTINIB
     Dosage: 3 MILLIGRAM
  4. FRUZAQLA [Suspect]
     Active Substance: FRUQUINTINIB
     Dosage: UNK
  5. FRUZAQLA [Suspect]
     Active Substance: FRUQUINTINIB
     Dosage: 3 MILLIGRAM, QOD

REACTIONS (7)
  - Ileus [Fatal]
  - Proteinuria [Not Recovered/Not Resolved]
  - Cerebral haemorrhage [Fatal]
  - Myalgia [Recovered/Resolved]
  - Blood thyroid stimulating hormone increased [Recovering/Resolving]
  - Diarrhoea [Not Recovered/Not Resolved]
  - Accidental underdose [Not Recovered/Not Resolved]

NARRATIVE: CASE EVENT DATE: 20250526
